FAERS Safety Report 20333421 (Version 2)
Quarter: 2022Q1

REPORT INFORMATION
  Report Type: Spontaneous
  Country: US (occurrence: US)
  Receive Date: 20220113
  Receipt Date: 20220119
  Transmission Date: 20220423
  Serious: Yes (Death)
  Sender: FDA-Public Use
  Company Number: US-PFIZER INC-2021749193

PATIENT
  Age: 83 Year
  Sex: Female

DRUGS (2)
  1. INLYTA [Suspect]
     Active Substance: AXITINIB
     Dosage: 5 MG
     Dates: start: 20210414, end: 20210604
  2. INLYTA [Suspect]
     Active Substance: AXITINIB
     Dosage: 5 MG
     Dates: start: 20210601

REACTIONS (12)
  - Death [Fatal]
  - Swelling [Unknown]
  - Erythema [Unknown]
  - Oral pain [Unknown]
  - Thirst [Unknown]
  - Dizziness [Unknown]
  - Stomatitis [Unknown]
  - Vaginal lesion [Unknown]
  - Glossodynia [Unknown]
  - Rash [Unknown]
  - Taste disorder [Recovered/Resolved]
  - Fatigue [Unknown]
